FAERS Safety Report 6873779-7 (Version None)
Quarter: 2010Q3

REPORT INFORMATION
  Report Type: 
  Country: None (occurrence: None)
  Receive Date: 20100723
  Receipt Date: 20090318
  Transmission Date: 20110219
  Serious: Yes (Death)
  Sender: FDA-Public Use
  Company Number: US-PFIZER INC-2009175015

PATIENT
  Sex: Male

DRUGS (3)
  1. CHANTIX [Suspect]
     Indication: SMOKING CESSATION THERAPY
     Dosage: UNK
     Route: 048
     Dates: start: 20090204, end: 20090215
  2. AMBIEN [Concomitant]
     Dosage: 10 MG, UNK
  3. XANAX [Concomitant]
     Indication: ANXIETY
     Dosage: 1 MG, UNK

REACTIONS (1)
  - COMPLETED SUICIDE [None]
